FAERS Safety Report 13870108 (Version 6)
Quarter: 2022Q4

REPORT INFORMATION
  Report Type: Spontaneous
  Country: GB (occurrence: GB)
  Receive Date: 20170815
  Receipt Date: 20221010
  Transmission Date: 20230113
  Serious: Yes (Death, Life-Threatening, Disabling, Other)
  Sender: FDA-Public Use
  Company Number: None

PATIENT
  Age: 39 Year
  Sex: Female
  Weight: 56 kg

DRUGS (10)
  1. MIRTAZAPINE [Suspect]
     Active Substance: MIRTAZAPINE
     Indication: Perinatal depression
     Dosage: 15 MILLIGRAM
     Route: 048
     Dates: start: 20170531, end: 20170614
  2. MIRTAZAPINE [Suspect]
     Active Substance: MIRTAZAPINE
     Indication: Depression
     Dosage: 15-30MG
     Route: 065
     Dates: start: 20170601, end: 20170614
  3. MIRTAZAPINE [Suspect]
     Active Substance: MIRTAZAPINE
     Dosage: 15 MILLIGRAM
     Route: 048
     Dates: start: 20170601, end: 20170603
  4. MIRTAZAPINE [Suspect]
     Active Substance: MIRTAZAPINE
     Dosage: 30 MILLIGRAM
     Route: 048
     Dates: start: 20170603, end: 20170612
  5. MIRTAZAPINE [Suspect]
     Active Substance: MIRTAZAPINE
     Dosage: 15 MILLIGRAM
     Route: 048
     Dates: start: 20170612, end: 20170614
  6. MIRTAZAPINE [Suspect]
     Active Substance: MIRTAZAPINE
     Dosage: UNK
     Route: 065
  7. ZOPICLONE [Suspect]
     Active Substance: ZOPICLONE
     Indication: Insomnia
     Dosage: 7.5 MILLIGRAM
     Route: 048
     Dates: start: 20170607, end: 20170614
  8. ZOPICLONE [Suspect]
     Active Substance: ZOPICLONE
     Dosage: 3.75 MILLIGRAM
     Route: 048
     Dates: start: 20170607, end: 20170609
  9. ZOPICLONE [Suspect]
     Active Substance: ZOPICLONE
     Dosage: 7.5 MILLIGRAM
     Route: 048
     Dates: start: 20170609
  10. ZOPICLONE [Concomitant]
     Active Substance: ZOPICLONE
     Dosage: UNK
     Route: 065
     Dates: start: 20170607

REACTIONS (12)
  - Completed suicide [Fatal]
  - Disorientation [Unknown]
  - Tinnitus [Unknown]
  - Depression [Unknown]
  - Suicidal ideation [Not Recovered/Not Resolved]
  - Tremor [Unknown]
  - Hypersensitivity [Unknown]
  - Hallucinations, mixed [Unknown]
  - Vomiting [Unknown]
  - Akathisia [Unknown]
  - Product prescribing error [Unknown]
  - Drug monitoring procedure not performed [Unknown]

NARRATIVE: CASE EVENT DATE: 20170614
